FAERS Safety Report 11525325 (Version 1)
Quarter: 2015Q3

REPORT INFORMATION
  Report Type: Spontaneous
  Country: US (occurrence: US)
  Receive Date: 20150918
  Receipt Date: 20150918
  Transmission Date: 20151125
  Serious: No
  Sender: FDA-Public Use
  Company Number: US-TARO-2014TAR00568

PATIENT
  Age: 4 Year
  Sex: Female
  Weight: 17.23 kg

DRUGS (3)
  1. ^OTHER ANTIBIOTICS^ (UNSPECIFIED) [Concomitant]
     Indication: PHARYNGITIS STREPTOCOCCAL
  2. HYDROCORTISONE BUTYRATE CREAM USP 0.1% [Suspect]
     Active Substance: HYDROCORTISONE BUTYRATE
     Dosage: UNK UNK, ONCE
     Route: 061
     Dates: start: 20141116, end: 20141116
  3. CEFDINIR. [Concomitant]
     Active Substance: CEFDINIR
     Indication: PHARYNGITIS STREPTOCOCCAL

REACTIONS (3)
  - Accidental exposure to product [Recovered/Resolved]
  - Rash erythematous [Not Recovered/Not Resolved]
  - Pruritus [Not Recovered/Not Resolved]

NARRATIVE: CASE EVENT DATE: 20141116
